FAERS Safety Report 23598718 (Version 1)
Quarter: 2024Q1

REPORT INFORMATION
  Report Type: Spontaneous
  Country: US (occurrence: US)
  Receive Date: 20240306
  Receipt Date: 20240306
  Transmission Date: 20240409
  Serious: Yes (Disabling)
  Sender: FDA-Public Use
  Company Number: US-SA-SAC20240301000838

PATIENT
  Age: 33 Year
  Sex: Female

DRUGS (1)
  1. KEVZARA [Suspect]
     Active Substance: SARILUMAB
     Indication: Rheumatoid arthritis
     Dosage: 200 MG, QOW
     Route: 058
     Dates: start: 202402

REACTIONS (3)
  - Loss of personal independence in daily activities [Unknown]
  - Movement disorder [Unknown]
  - Pain [Unknown]

NARRATIVE: CASE EVENT DATE: 20240201
